FAERS Safety Report 5351186-6 (Version None)
Quarter: 2007Q2

REPORT INFORMATION
  Report Type: 
  Country: None (occurrence: None)
  Receive Date: 20070608
  Receipt Date: 20070525
  Transmission Date: 20071010
  Serious: Yes (Other)
  Sender: FDA-Public Use
  Company Number: US-PFIZER INC-2007042433

PATIENT
  Sex: Male

DRUGS (2)
  1. SUTENT [Suspect]
     Indication: RENAL CANCER METASTATIC
  2. SIMETHICONE [Interacting]
     Route: 048

REACTIONS (3)
  - DRUG INTERACTION [None]
  - FLATULENCE [None]
  - OESOPHAGEAL PAIN [None]
